FAERS Safety Report 16847330 (Version 1)
Quarter: 2019Q3

REPORT INFORMATION
  Report Type: Report from Study
  Country: US (occurrence: US)
  Receive Date: 20190924
  Receipt Date: 20190924
  Transmission Date: 20191005
  Serious: Yes (Hospitalization)
  Sender: FDA-Public Use
  Company Number: US-ACTELION-A-NJ2019-196046

PATIENT
  Sex: Female
  Weight: 63.49 kg

DRUGS (4)
  1. OPSUMIT [Suspect]
     Active Substance: MACITENTAN
     Indication: PULMONARY ARTERIAL HYPERTENSION
     Dosage: 10 MG, QD
     Route: 048
  2. ADEMPAS [Concomitant]
     Active Substance: RIOCIGUAT
  3. UPTRAVI [Concomitant]
     Active Substance: SELEXIPAG
  4. COUMADIN [Concomitant]
     Active Substance: WARFARIN SODIUM

REACTIONS (2)
  - Gastritis [Unknown]
  - Abdominal pain upper [Unknown]
